FAERS Safety Report 8585059-2 (Version None)
Quarter: 2012Q3

REPORT INFORMATION
  Report Type: 
  Country: None (occurrence: None)
  Receive Date: 20120810
  Receipt Date: 20120802
  Transmission Date: 20120928
  Serious: Yes (Other)
  Sender: FDA-Public Use
  Company Number: US-US-EMD SERONO, INC.-7152251

PATIENT
  Sex: Female

DRUGS (4)
  1. REBIF [Suspect]
     Dates: start: 20051201, end: 20100927
  2. REBIF [Suspect]
     Route: 058
     Dates: start: 20110801
  3. REBIF [Suspect]
     Indication: PRODUCT USED FOR UNKNOWN INDICATION
     Dates: start: 20030927, end: 20040102
  4. REBIF [Suspect]
     Dates: start: 20040426, end: 20040627

REACTIONS (1)
  - LEUKOCYTOCLASTIC VASCULITIS [None]
